FAERS Safety Report 24818171 (Version 1)
Quarter: 2025Q1

REPORT INFORMATION
  Report Type: Report from Study
  Country: CN (occurrence: CN)
  Receive Date: 20250108
  Receipt Date: 20250108
  Transmission Date: 20250409
  Serious: Yes (Other)
  Sender: GILEAD
  Company Number: CN-GILEAD-2024-0696713

PATIENT
  Age: 66 Year
  Sex: Male

DRUGS (3)
  1. SACITUZUMAB GOVITECAN-HZIY [Suspect]
     Active Substance: SACITUZUMAB GOVITECAN-HZIY
     Indication: Ureteric cancer
     Dosage: 540 MG, Q3WK (C9D1)
     Route: 041
     Dates: start: 20241129
  2. SACITUZUMAB GOVITECAN-HZIY [Suspect]
     Active Substance: SACITUZUMAB GOVITECAN-HZIY
     Dosage: 540 MG, Q3WK (C9D8)
     Route: 041
     Dates: start: 20241206
  3. SACITUZUMAB GOVITECAN-HZIY [Suspect]
     Active Substance: SACITUZUMAB GOVITECAN-HZIY
     Dosage: 540 MG, Q3WK (C11D8), G D1, D8
     Route: 041
     Dates: start: 20250103

REACTIONS (7)
  - Malignant peritoneal neoplasm [Unknown]
  - Metastases to bone [Unknown]
  - Metastases to lung [Unknown]
  - Metastases to lymph nodes [Unknown]
  - Mesenteric neoplasm [Unknown]
  - Neutrophil count decreased [Unknown]
  - Product use in unapproved indication [Unknown]
